FAERS Safety Report 16139629 (Version 1)
Quarter: 2019Q2

REPORT INFORMATION
  Report Type: Spontaneous
  Country: US (occurrence: US)
  Receive Date: 20190329
  Receipt Date: 20190329
  Transmission Date: 20190711
  Serious: Yes (Other)
  Sender: FDA-Public Use
  Company Number: None

PATIENT
  Age: 68 Year
  Sex: Male
  Weight: 72 kg

DRUGS (4)
  1. BABY ASPIRIN [Concomitant]
     Active Substance: ASPIRIN
  2. COQ 10 [Concomitant]
     Active Substance: UBIDECARENONE
  3. LYRICA [Suspect]
     Active Substance: PREGABALIN
     Indication: INSOMNIA
     Dosage: ?          QUANTITY:90 CAPSULE(S);?
     Route: 048
     Dates: end: 20190328
  4. THERACURMIN [Concomitant]
     Active Substance: CURCUMIN\DIETARY SUPPLEMENT

REACTIONS (5)
  - Product contamination [None]
  - Abnormal dreams [None]
  - Product complaint [None]
  - Sleep disorder [None]
  - Muscle spasms [None]

NARRATIVE: CASE EVENT DATE: 20190205
